FAERS Safety Report 4363135-8 (Version None)
Quarter: 2004Q2

REPORT INFORMATION
  Report Type: 
  Country: None (occurrence: None)
  Receive Date: 20040517
  Receipt Date: 20040217
  Transmission Date: 20050107
  Serious: No
  Sender: FDA-Public Use
  Company Number: S04-USA-00928-01

PATIENT
  Age: 84 Year
  Sex: Female

DRUGS (4)
  1. NAMENDA [Suspect]
     Indication: DEMENTIA ALZHEIMER'S TYPE
     Dosage: 10 MG BID PO
     Route: 048
     Dates: start: 20040120
  2. ARICEPT [Concomitant]
  3. ASPIRIN [Concomitant]
  4. THYROID (NOS) [Concomitant]

REACTIONS (1)
  - SOMNOLENCE [None]
